FAERS Safety Report 17444112 (Version 1)
Quarter: 2020Q1

REPORT INFORMATION
  Report Type: Report from Study
  Country: US (occurrence: US)
  Receive Date: 20200221
  Receipt Date: 20200221
  Transmission Date: 20200409
  Serious: Yes (Other)
  Sender: FDA-Public Use
  Company Number: US-ROCHE-2533220

PATIENT
  Sex: Male

DRUGS (2)
  1. RITUXAN [Suspect]
     Active Substance: RITUXIMAB
     Indication: NON-HODGKIN^S LYMPHOMA
     Dosage: INFUSE 671 MG INTRAVENOUSLY EVERY 21 DAY(S)
     Route: 042
  2. RITUXAN [Suspect]
     Active Substance: RITUXIMAB
     Dosage: INFUSE 671 MG INTRAVENOUSLY EVERY 21 DAY(S)
     Route: 042

REACTIONS (2)
  - Non-alcoholic steatohepatitis [Unknown]
  - Transient ischaemic attack [Unknown]
